FAERS Safety Report 9174125 (Version 3)
Quarter: 2013Q2

REPORT INFORMATION
  Report Type: Spontaneous
  Country: GB (occurrence: None)
  Receive Date: 20130315
  Receipt Date: 20130413
  Transmission Date: 20140414
  Serious: Yes (Other)
  Sender: FDA-Public Use
  Company Number: AUR-APL-2013-02189

PATIENT
  Age: 25 Year
  Sex: Female

DRUGS (1)
  1. MIRTAZAPINE [Suspect]
     Indication: ANXIETY
     Route: 048

REACTIONS (4)
  - Suicidal ideation [None]
  - Abnormal behaviour [None]
  - Hostility [None]
  - Impulsive behaviour [None]
